FAERS Safety Report 25173498 (Version 5)
Quarter: 2025Q2

REPORT INFORMATION
  Report Type: Spontaneous
  Country: GB (occurrence: GB)
  Receive Date: 20250408
  Receipt Date: 20250605
  Transmission Date: 20250717
  Serious: No
  Sender: PFIZER
  Company Number: GB-PFIZER INC-202500074282

PATIENT

DRUGS (1)
  1. REFACTO AF [Suspect]
     Active Substance: MOROCTOCOG ALFA
     Indication: Haemophilia

REACTIONS (1)
  - Device breakage [Unknown]
